FAERS Safety Report 4695963-3 (Version None)
Quarter: 2005Q2

REPORT INFORMATION
  Report Type: 
  Country: None (occurrence: None)
  Receive Date: 20050621
  Receipt Date: 20050614
  Transmission Date: 20051028
  Serious: Yes (Other)
  Sender: FDA-Public Use
  Company Number: PHBS2005JP08629

PATIENT
  Age: 72 Year
  Sex: Female

DRUGS (2)
  1. DIOVAN [Suspect]
     Dosage: 80 MG, QD
     Route: 048
  2. DIOVAN [Suspect]
     Dosage: 160 MG, QD
     Route: 048

REACTIONS (1)
  - CEREBRAL INFARCTION [None]
